FAERS Safety Report 8031718-X (Version None)
Quarter: 2012Q1

REPORT INFORMATION
  Report Type: 
  Country: None (occurrence: None)
  Receive Date: 20120109
  Receipt Date: 20120103
  Transmission Date: 20120608
  Serious: Yes (Other)
  Sender: FDA-Public Use
  Company Number: US-AMGEN-USASP2011061053

PATIENT
  Age: 72 Year
  Sex: Female
  Weight: 73.469 kg

DRUGS (1)
  1. PROLIA [Suspect]
     Indication: OSTEOPOROSIS
     Dosage: 60 MG, UNK
     Route: 058
     Dates: start: 20111017

REACTIONS (4)
  - HEART RATE INCREASED [None]
  - PALPITATIONS [None]
  - CHEST DISCOMFORT [None]
  - ANXIETY [None]
